FAERS Safety Report 8818561 (Version 9)
Quarter: 2013Q2

REPORT INFORMATION
  Report Type: Spontaneous
  Country: CA (occurrence: CA)
  Receive Date: 20121001
  Receipt Date: 20130513
  Transmission Date: 20140414
  Serious: Yes (Other)
  Sender: FDA-Public Use
  Company Number: CA-ROCHE-1138399

PATIENT
  Age: 49 Year
  Sex: Male

DRUGS (7)
  1. XOLAIR [Suspect]
     Indication: ASTHMA
     Route: 058
     Dates: start: 20110305
  2. XOLAIR [Suspect]
     Indication: ASPERGILLUS INFECTION
     Route: 065
     Dates: start: 20130128
  3. XOLAIR [Suspect]
     Route: 065
     Dates: start: 20130311
  4. XOLAIR [Suspect]
     Route: 065
     Dates: start: 20130506
  5. SALBUTAMOL [Concomitant]
  6. PREDNISONE [Concomitant]
  7. SYMBICORT [Concomitant]

REACTIONS (17)
  - Blood pressure increased [Not Recovered/Not Resolved]
  - Insomnia [Unknown]
  - Nasal congestion [Unknown]
  - Malaise [Unknown]
  - Productive cough [Unknown]
  - Rhinorrhoea [Unknown]
  - Lacrimation increased [Unknown]
  - Rhinitis [Unknown]
  - Asthma [Unknown]
  - Dyspnoea [Unknown]
  - Wheezing [Unknown]
  - Chest discomfort [Unknown]
  - Hypersensitivity [Unknown]
  - Obstructive airways disorder [Unknown]
  - Crepitations [Unknown]
  - Heart rate increased [Unknown]
  - Drug ineffective [Unknown]
